FAERS Safety Report 9802981 (Version 1)
Quarter: 2014Q1

REPORT INFORMATION
  Report Type: Spontaneous
  Country: US (occurrence: None)
  Receive Date: 20140106
  Receipt Date: 20140106
  Transmission Date: 20141002
  Serious: Yes (Hospitalization, Disabling)
  Sender: FDA-Public Use
  Company Number: None

PATIENT
  Age: 80 Year
  Sex: Female
  Weight: 91.5 kg

DRUGS (3)
  1. RIVAROXABAN [Suspect]
     Indication: ATRIAL FIBRILLATION
     Route: 048
  2. XARELTO [Concomitant]
  3. ASA [Concomitant]

REACTIONS (5)
  - Upper gastrointestinal haemorrhage [None]
  - Melaena [None]
  - VIIth nerve paralysis [None]
  - Cerebral artery thrombosis [None]
  - Cerebral infarction [None]
